FAERS Safety Report 8612404 (Version 55)
Quarter: 2020Q1

REPORT INFORMATION
  Report Type: Spontaneous
  Country: CA (occurrence: CA)
  Receive Date: 20120613
  Receipt Date: 20200312
  Transmission Date: 20200409
  Serious: Yes (Other)
  Sender: FDA-Public Use
  Company Number: CA-ROCHE-1025145

PATIENT
  Age: 37 Year
  Sex: Female
  Weight: 75 kg

DRUGS (25)
  1. XOLAIR [Suspect]
     Active Substance: OMALIZUMAB
     Route: 058
     Dates: start: 20130702
  2. XOLAIR [Suspect]
     Active Substance: OMALIZUMAB
     Route: 058
     Dates: start: 20160816
  3. XOLAIR [Suspect]
     Active Substance: OMALIZUMAB
     Route: 058
     Dates: start: 20170322
  4. XOLAIR [Suspect]
     Active Substance: OMALIZUMAB
     Route: 058
     Dates: start: 20180906
  5. XOLAIR [Suspect]
     Active Substance: OMALIZUMAB
     Route: 058
     Dates: start: 20190129
  6. XOLAIR [Suspect]
     Active Substance: OMALIZUMAB
     Route: 058
     Dates: start: 20141208
  7. XOLAIR [Suspect]
     Active Substance: OMALIZUMAB
     Route: 058
     Dates: start: 20150615
  8. XOLAIR [Suspect]
     Active Substance: OMALIZUMAB
     Route: 058
     Dates: start: 20160315
  9. XOLAIR [Suspect]
     Active Substance: OMALIZUMAB
     Route: 058
     Dates: start: 20170404
  10. XOLAIR [Suspect]
     Active Substance: OMALIZUMAB
     Route: 058
     Dates: start: 20161108
  11. ADVAIR HFA [Concomitant]
     Active Substance: FLUTICASONE PROPIONATE\SALMETEROL XINAFOATE
     Indication: PRODUCT USED FOR UNKNOWN INDICATION
     Route: 065
  12. XOLAIR [Suspect]
     Active Substance: OMALIZUMAB
     Route: 058
     Dates: start: 20161025
  13. XOLAIR [Suspect]
     Active Substance: OMALIZUMAB
     Route: 058
     Dates: start: 20161206
  14. XOLAIR [Suspect]
     Active Substance: OMALIZUMAB
     Route: 058
     Dates: start: 20161220
  15. XOLAIR [Suspect]
     Active Substance: OMALIZUMAB
     Route: 058
     Dates: start: 20170307
  16. XOLAIR [Suspect]
     Active Substance: OMALIZUMAB
     Route: 058
     Dates: start: 20181009
  17. XOLAIR [Suspect]
     Active Substance: OMALIZUMAB
     Route: 058
     Dates: start: 20160329
  18. XOLAIR [Suspect]
     Active Substance: OMALIZUMAB
     Route: 058
     Dates: start: 20180116
  19. XOLAIR [Suspect]
     Active Substance: OMALIZUMAB
     Indication: ASTHMA
     Route: 058
     Dates: start: 20100816
  20. XOLAIR [Suspect]
     Active Substance: OMALIZUMAB
     Route: 058
     Dates: start: 20111026
  21. XOLAIR [Suspect]
     Active Substance: OMALIZUMAB
     Route: 058
     Dates: start: 20170221
  22. XOLAIR [Suspect]
     Active Substance: OMALIZUMAB
     Route: 058
     Dates: start: 20160412
  23. XOLAIR [Suspect]
     Active Substance: OMALIZUMAB
     Route: 058
     Dates: start: 20170206
  24. XOLAIR [Suspect]
     Active Substance: OMALIZUMAB
     Route: 058
     Dates: start: 20200121
  25. XOLAIR [Suspect]
     Active Substance: OMALIZUMAB
     Dosage: 300 MG,Q2W
     Route: 058
     Dates: start: 20200219

REACTIONS (45)
  - Nausea [Unknown]
  - Oropharyngeal pain [Unknown]
  - Sinusitis [Unknown]
  - Hypotension [Not Recovered/Not Resolved]
  - Bone marrow oedema [Unknown]
  - Weight decreased [Unknown]
  - Respiratory tract congestion [Not Recovered/Not Resolved]
  - Dyspnoea [Recovering/Resolving]
  - Spinal osteoarthritis [Unknown]
  - Headache [Unknown]
  - Dizziness [Unknown]
  - Influenza like illness [Unknown]
  - Arthralgia [Unknown]
  - Lung disorder [Unknown]
  - Pulmonary congestion [Unknown]
  - Limb discomfort [Unknown]
  - Ear pain [Unknown]
  - Incorrect dose administered [Unknown]
  - Gait disturbance [Unknown]
  - Influenza [Unknown]
  - Spinal cord injury [Unknown]
  - Precancerous cells present [Unknown]
  - Rash [Unknown]
  - Respiratory rate decreased [Unknown]
  - Malaise [Unknown]
  - Pyrexia [Recovered/Resolved]
  - Oxygen saturation decreased [Unknown]
  - Spinal cord compression [Unknown]
  - Stress [Unknown]
  - Body temperature decreased [Unknown]
  - Hypoaesthesia [Unknown]
  - Weight increased [Unknown]
  - Asthenia [Unknown]
  - Hypersensitivity [Recovered/Resolved]
  - Asthma [Unknown]
  - Fatigue [Unknown]
  - Cervix carcinoma [Unknown]
  - Nasopharyngitis [Unknown]
  - Cough [Not Recovered/Not Resolved]
  - Neck deformity [Unknown]
  - Toothache [Unknown]
  - Pain of skin [Unknown]
  - Paraesthesia [Unknown]
  - Tooth disorder [Unknown]
  - Oral pigmentation [Unknown]

NARRATIVE: CASE EVENT DATE: 201110
